FAERS Safety Report 20461308 (Version 2)
Quarter: 2022Q1

REPORT INFORMATION
  Report Type: Spontaneous
  Country: US (occurrence: US)
  Receive Date: 20220211
  Receipt Date: 20220301
  Transmission Date: 20220423
  Serious: Yes (Hospitalization, Other)
  Sender: FDA-Public Use
  Company Number: US-MEDEXUS PHARMA, INC.-2022MED00048

PATIENT
  Age: 55 Year
  Sex: Female
  Weight: 46.259 kg

DRUGS (3)
  1. RASUVO [Suspect]
     Active Substance: METHOTREXATE SODIUM
     Indication: Rheumatoid arthritis
     Dosage: 10 MG, IN THE ABDOMEN, 1X/WEEK, EVERY SUNDAY NIGHT
  2. RASUVO [Suspect]
     Active Substance: METHOTREXATE SODIUM
     Indication: Crohn^s disease
  3. STELARA [Concomitant]
     Active Substance: USTEKINUMAB

REACTIONS (5)
  - Intestinal obstruction [Recovered/Resolved]
  - Product dose omission issue [Not Recovered/Not Resolved]
  - Pain in extremity [Not Recovered/Not Resolved]
  - Joint range of motion decreased [Not Recovered/Not Resolved]
  - Arthralgia [Not Recovered/Not Resolved]

NARRATIVE: CASE EVENT DATE: 20220123
